FAERS Safety Report 19510410 (Version 1)
Quarter: 2021Q3

REPORT INFORMATION
  Report Type: Other
  Country: CA (occurrence: CA)
  Receive Date: 20210709
  Receipt Date: 20210709
  Transmission Date: 20211014
  Serious: Yes (Hospitalization)
  Sender: FDA-Public Use
  Company Number: CA-APOTEX-2021AP015223

PATIENT
  Age: 60 Year
  Sex: Female

DRUGS (2)
  1. STELARA [Concomitant]
     Active Substance: USTEKINUMAB
     Indication: PRODUCT USED FOR UNKNOWN INDICATION
     Dosage: UNK
     Route: 065
  2. DDAVP [Suspect]
     Active Substance: DESMOPRESSIN ACETATE
     Indication: DIABETES INSIPIDUS
     Dosage: 60 MICROGRAM, QD
     Route: 060

REACTIONS (9)
  - Poor quality product administered [Recovered/Resolved]
  - Blood sodium decreased [Recovered/Resolved]
  - Blood sodium increased [Recovered/Resolved]
  - Headache [Recovered/Resolved]
  - Pollakiuria [Recovered/Resolved]
  - Recalled product administered [Recovered/Resolved]
  - Thirst [Recovered/Resolved]
  - Dry mouth [Recovered/Resolved]
  - Treatment noncompliance [Recovered/Resolved]
